FAERS Safety Report 7319798-8 (Version None)
Quarter: 2011Q1

REPORT INFORMATION
  Report Type: 
  Country: None (occurrence: None)
  Receive Date: 20110228
  Receipt Date: 20101216
  Transmission Date: 20110831
  Serious: Yes (Other)
  Sender: FDA-Public Use
  Company Number: A0884284A

PATIENT
  Age: 13 Year
  Sex: Male

DRUGS (3)
  1. LAMICTAL [Suspect]
     Dosage: 25MG THREE TIMES PER DAY
     Route: 048
     Dates: start: 20070101, end: 20070512
  2. KEPPRA [Suspect]
     Route: 048
     Dates: start: 20070512, end: 20070518
  3. DEPAKOTE [Suspect]
     Dosage: 1250MG PER DAY
     Route: 048
     Dates: start: 20070301, end: 20070513

REACTIONS (2)
  - TOXIC EPIDERMAL NECROLYSIS [None]
  - STEVENS-JOHNSON SYNDROME [None]
